FAERS Safety Report 7124336-9 (Version None)
Quarter: 2010Q4

REPORT INFORMATION
  Report Type: 
  Country: None (occurrence: None)
  Receive Date: 20101126
  Receipt Date: 20101117
  Transmission Date: 20110411
  Serious: Yes (Hospitalization)
  Sender: FDA-Public Use
  Company Number: PHHO2010CA04067

PATIENT
  Sex: Female
  Weight: 67.5 kg

DRUGS (16)
  1. CERTICAN [Suspect]
     Indication: LIVER TRANSPLANT
     Dosage: 1 MG, BID
     Route: 048
     Dates: start: 20100308, end: 20100405
  2. TACROLIMUS [Suspect]
     Indication: LIVER TRANSPLANT
     Dosage: 4 MG, BID
     Route: 048
     Dates: start: 20100202, end: 20100312
  3. TACROLIMUS [Suspect]
     Dosage: NO TREATMENT
     Dates: start: 20100312, end: 20100313
  4. TACROLIMUS [Suspect]
     Dosage: UNK
     Route: 048
     Dates: start: 20100314, end: 20100403
  5. ASA [Concomitant]
     Indication: PROPHYLAXIS
  6. DOMPERIDONE [Concomitant]
     Indication: NAUSEA
  7. HEPARIN [Concomitant]
     Indication: PROPHYLAXIS
  8. METFORMIN [Concomitant]
     Indication: DIABETES MELLITUS
  9. METOPROLOL SUCCINATE [Concomitant]
     Indication: HYPERTENSION
  10. RANITIDINE [Concomitant]
     Indication: PROPHYLAXIS
  11. CITALOPRAM HYDROBROMIDE [Concomitant]
     Indication: DEPRESSION
  12. METOCLOPRAMIDE [Concomitant]
     Indication: NAUSEA
  13. INSULIN [Concomitant]
     Indication: DIABETES MELLITUS
  14. MORPHINE [Concomitant]
     Indication: PAIN
  15. TYLENOL (CAPLET) [Concomitant]
  16. SIROLIMUS [Concomitant]

REACTIONS (8)
  - COGNITIVE DISORDER [None]
  - DELIRIUM [None]
  - DEPRESSION [None]
  - ENTEROCOCCAL SEPSIS [None]
  - NEUROTOXICITY [None]
  - PULMONARY OEDEMA [None]
  - RESPIRATORY FAILURE [None]
  - TOXIC ENCEPHALOPATHY [None]
